FAERS Safety Report 4338847-2 (Version None)
Quarter: 2004Q2

REPORT INFORMATION
  Report Type: 
  Country: None (occurrence: None)
  Receive Date: 20040414
  Receipt Date: 20040224
  Transmission Date: 20050107
  Serious: Yes (Other)
  Sender: FDA-Public Use
  Company Number: DE-MERCK-0402DEU00176

PATIENT
  Age: 44 Year
  Sex: Female
  Weight: 56 kg

DRUGS (1)
  1. VIOXX [Suspect]
     Indication: ARTHRALGIA
     Route: 048
     Dates: start: 20030901, end: 20030101

REACTIONS (1)
  - RETINAL HAEMORRHAGE [None]
